FAERS Safety Report 23144928 (Version 5)
Quarter: 2023Q4

REPORT INFORMATION
  Report Type: Report from Study
  Country: US (occurrence: US)
  Receive Date: 20231103
  Receipt Date: 20231207
  Transmission Date: 20240110
  Serious: Yes (Hospitalization)
  Sender: FDA-Public Use
  Company Number: US-BIOVITRUM-2023-US-017390

PATIENT
  Age: 50 Year
  Sex: Female

DRUGS (1)
  1. KINERET [Suspect]
     Active Substance: ANAKINRA
     Indication: Still^s disease
     Dosage: 100 MG, DAILY
     Route: 058
     Dates: start: 20231009

REACTIONS (6)
  - Adverse drug reaction [Unknown]
  - Intentional product misuse [Not Recovered/Not Resolved]
  - Intentional dose omission [Unknown]
  - Injection site pain [Unknown]
  - Rash [Unknown]
  - Pyrexia [Unknown]

NARRATIVE: CASE EVENT DATE: 20231009
